FAERS Safety Report 9600396 (Version 2)
Quarter: 2013Q4

REPORT INFORMATION
  Report Type: Spontaneous
  Country: US (occurrence: US)
  Receive Date: 20131004
  Receipt Date: 20131004
  Transmission Date: 20140711
  Serious: No
  Sender: FDA-Public Use
  Company Number: US-AMGEN-USASP2013031912

PATIENT
  Age: 59 Year
  Sex: Female
  Weight: 77.46 kg

DRUGS (10)
  1. ENBREL [Suspect]
     Indication: RHEUMATOID ARTHRITIS
     Dosage: 50 MG, QWK
     Route: 058
     Dates: start: 20130124
  2. METHOTREXATE [Concomitant]
     Dosage: FOR 4 YEARS
     Route: 058
  3. DELTASONE                          /00044701/ [Concomitant]
     Dosage: 5 MG, QD, FOR 30 DAYS
  4. ZOVIRAX                            /00587301/ [Concomitant]
     Dosage: UNK UNK, BID
     Route: 061
  5. FOLVITE                            /00024201/ [Concomitant]
     Dosage: 1 MG, QD
     Route: 048
  6. VICODIN [Concomitant]
     Dosage: 1 TAB, Q6H, AS NEEDED
     Route: 048
  7. FOSAMAX [Concomitant]
     Dosage: 70 MG, QWK
     Route: 048
  8. MAXIMUM D3 [Concomitant]
     Dosage: 1000 UNIT, QWK
     Route: 048
  9. XANAX [Concomitant]
     Dosage: 0.25 MG, QD AT NIGHT AS NEEDED
     Route: 048
  10. TOPAMAX [Concomitant]
     Dosage: 50 MG, QD
     Route: 048

REACTIONS (3)
  - Pain in extremity [Not Recovered/Not Resolved]
  - Injection site haemorrhage [Recovered/Resolved]
  - Injection site pain [Not Recovered/Not Resolved]
